FAERS Safety Report 7254478-9 (Version None)
Quarter: 2011Q1

REPORT INFORMATION
  Report Type: 
  Country: None (occurrence: None)
  Receive Date: 20110129
  Receipt Date: 20100428
  Transmission Date: 20110831
  Serious: No
  Sender: FDA-Public Use
  Company Number: US-ABBOTT-10P-163-0641166-00

PATIENT
  Sex: Female
  Weight: 86.26 kg

DRUGS (7)
  1. ZYRTEC [Concomitant]
     Indication: HYPERSENSITIVITY
  2. FLONASE [Concomitant]
     Indication: HYPERSENSITIVITY
  3. HUMIRA [Suspect]
     Indication: CROHN'S DISEASE
     Dates: start: 20070101, end: 20100201
  4. METHOTREXATE [Concomitant]
     Indication: PRODUCT USED FOR UNKNOWN INDICATION
     Dates: start: 20100407
  5. HUMIRA [Suspect]
     Indication: RHEUMATOID ARTHRITIS
  6. METHOTREXATE [Concomitant]
     Dates: start: 20060101, end: 20090101
  7. PROMETHAZINE [Concomitant]
     Indication: NAUSEA

REACTIONS (2)
  - ARTHRALGIA [None]
  - DIARRHOEA [None]
